FAERS Safety Report 8887471 (Version 1)
Quarter: 2012Q4

REPORT INFORMATION
  Report Type: Spontaneous
  Country: US (occurrence: None)
  Receive Date: 20121101
  Receipt Date: 20121101
  Transmission Date: 20130627
  Serious: Yes (Other)
  Sender: FDA-Public Use
  Company Number: None

PATIENT
  Age: 31 Year
  Sex: Female
  Weight: 52.62 kg

DRUGS (2)
  1. MYCOPHENOLATE [Suspect]
     Indication: LUPUS ERYTHEMATOSUS
     Route: 048
     Dates: start: 20101120, end: 20111017
  2. MYCOPHENOLATE [Suspect]
     Dates: start: 20111022, end: 20120319

REACTIONS (1)
  - Breast cancer [None]
